FAERS Safety Report 4986650-2 (Version None)
Quarter: 2006Q2

REPORT INFORMATION
  Report Type: 
  Country: None (occurrence: None)
  Receive Date: 20060428
  Receipt Date: 20060327
  Transmission Date: 20061013
  Serious: Yes (Hospitalization)
  Sender: FDA-Public Use
  Company Number: US-BOEHRINGER INGELHEIM PHARMACEUTICALS, INC.-2006-BP-03377BP

PATIENT
  Age: 77 Year
  Sex: Male

DRUGS (4)
  1. SPIRIVA [Suspect]
     Indication: CHRONIC OBSTRUCTIVE PULMONARY DISEASE
     Route: 055
     Dates: start: 20050321, end: 20060301
  2. SPIRIVA [Suspect]
     Indication: EMPHYSEMA
  3. PERCOCET [Concomitant]
     Indication: ARTHRALGIA
  4. IRON SUPPLEMENT [Concomitant]
     Indication: MINERAL SUPPLEMENTATION

REACTIONS (5)
  - CARDIAC FAILURE CONGESTIVE [None]
  - CONSTIPATION [None]
  - OEDEMA PERIPHERAL [None]
  - PAIN IN EXTREMITY [None]
  - REFUSAL OF TREATMENT BY PATIENT [None]
